FAERS Safety Report 14900294 (Version 2)
Quarter: 2018Q3

REPORT INFORMATION
  Report Type: Report from Study
  Country: ES (occurrence: ES)
  Receive Date: 20180516
  Receipt Date: 20180716
  Transmission Date: 20181010
  Serious: Yes (Death, Hospitalization, Other)
  Sender: FDA-Public Use
  Company Number: ES-ASPEN-GLO2018ES004651

PATIENT
  Age: 37 Year
  Sex: Male

DRUGS (6)
  1. FLUDARABINA [Interacting]
     Active Substance: FLUDARABINE PHOSPHATE
     Indication: ACUTE MYELOID LEUKAEMIA
     Dosage: || DOSIS UNIDAD FRECUENCIA: 240 MG?MILIGRAMOS || DOSIS POR TOMA: 240 MG?MILIGRAMOS || N? TOMAS POR U
     Route: 042
     Dates: start: 20130821, end: 20130824
  2. METILPREDNISOLONA [Interacting]
     Active Substance: METHYLPREDNISOLONE
     Indication: ACUTE MYELOID LEUKAEMIA
     Dosage: 80 MG, TOTAL
     Route: 042
     Dates: start: 20130827, end: 20130827
  3. CICLOFOSFAMIDA [Interacting]
     Active Substance: CYCLOPHOSPHAMIDE
     Indication: ACUTE MYELOID LEUKAEMIA
     Dosage: 2 G, TOTAL
     Route: 042
     Dates: start: 20130824, end: 20130825
  4. CICLOSPORINA [Interacting]
     Active Substance: CYCLOSPORINE
     Indication: PRODUCT USED FOR UNKNOWN INDICATION
     Dosage: UNK
     Route: 065
  5. BUSULFAN. [Suspect]
     Active Substance: BUSULFAN
     Indication: ACUTE MYELOID LEUKAEMIA
     Dosage: 240 MG, TOTAL
     Route: 042
     Dates: start: 20130822, end: 20130824
  6. MESNA. [Concomitant]
     Active Substance: MESNA
     Indication: ACUTE MYELOID LEUKAEMIA
     Dosage: 8 G, TOTAL
     Route: 042
     Dates: start: 20130825, end: 20130826

REACTIONS (3)
  - Cytomegalovirus hepatitis [Fatal]
  - Hepatic failure [Fatal]
  - Drug interaction [Unknown]

NARRATIVE: CASE EVENT DATE: 20130909
